FAERS Safety Report 14821767 (Version 1)
Quarter: 2018Q2

REPORT INFORMATION
  Report Type: Spontaneous
  Country: US (occurrence: US)
  Receive Date: 20180427
  Receipt Date: 20180427
  Transmission Date: 20180711
  Serious: Yes (Other)
  Sender: FDA-Public Use
  Company Number: US-MALLINCKRODT-T201801727

PATIENT
  Age: 18 Month
  Sex: Female
  Weight: 9 kg

DRUGS (1)
  1. UVADEX [Suspect]
     Active Substance: METHOXSALEN
     Indication: GRAFT VERSUS HOST DISEASE
     Dosage: UNK
     Route: 057

REACTIONS (3)
  - Product use in unapproved indication [Unknown]
  - Haemoglobin increased [Unknown]
  - Wrong technique in device usage process [Unknown]
